FAERS Safety Report 4872835-2 (Version None)
Quarter: 2005Q4

REPORT INFORMATION
  Report Type: 
  Country: None (occurrence: None)
  Receive Date: 20051201
  Receipt Date: 20050803
  Transmission Date: 20060501
  Serious: No
  Sender: FDA-Public Use
  Company Number: 2005PV000841

PATIENT
  Age: 58 Year
  Sex: Male
  Weight: 124.7392 kg

DRUGS (15)
  1. BYETTA [Suspect]
     Indication: DIABETES MELLITUS NON-INSULIN-DEPENDENT
     Dosage: SEE IMAGE
     Route: 058
     Dates: start: 20050624, end: 20050721
  2. BYETTA [Suspect]
     Indication: DIABETES MELLITUS NON-INSULIN-DEPENDENT
     Dosage: SEE IMAGE
     Route: 058
     Dates: start: 20050721
  3. LASIX [Suspect]
     Indication: HYPERTENSION
     Dosage: 40 MG; QD; PO
     Route: 048
     Dates: start: 20050501, end: 20050729
  4. LASIX [Concomitant]
  5. ENALAPRIL [Concomitant]
  6. CARDIZEM [Concomitant]
  7. AVANDIA [Concomitant]
  8. GLIPIZIDE [Concomitant]
  9. METFORMIN [Concomitant]
  10. CRESTOR [Concomitant]
  11. ZETIA [Concomitant]
  12. ASPIRIN [Concomitant]
  13. ALLEGRA [Concomitant]
  14. ZANTAC [Concomitant]
  15. LANTUS [Concomitant]

REACTIONS (4)
  - BLOOD PRESSURE DECREASED [None]
  - DEHYDRATION [None]
  - NAUSEA [None]
  - WEIGHT DECREASED [None]
